FAERS Safety Report 4871261-X (Version None)
Quarter: 2005Q4

REPORT INFORMATION
  Report Type: 
  Country: None (occurrence: None)
  Receive Date: 20051229
  Receipt Date: 20051219
  Transmission Date: 20060501
  Serious: Yes (Other)
  Sender: FDA-Public Use
  Company Number: 2005170785

PATIENT
  Age: 37 Year
  Sex: Female
  Weight: 77.1115 kg

DRUGS (5)
  1. DOSTINEX [Suspect]
     Indication: HYPERPROLACTINAEMIA
     Dosage: 0.75 MG (0.75 MG, 2 IN 1 WK)
     Dates: start: 20050101
  2. AMBIEN [Suspect]
     Indication: SLEEP DISORDER
     Dates: start: 20051001
  3. NALTREXONE HCL [Suspect]
     Indication: ILL-DEFINED DISORDER
  4. PROPRANOLOL [Concomitant]
  5. EFFEXOR [Concomitant]

REACTIONS (2)
  - AKATHISIA [None]
  - COMPULSIONS [None]
